FAERS Safety Report 6291178-6 (Version None)
Quarter: 2009Q3

REPORT INFORMATION
  Report Type: 
  Country: None (occurrence: None)
  Receive Date: 20090730
  Receipt Date: 20090514
  Transmission Date: 20100115
  Serious: Yes (Other)
  Sender: FDA-Public Use
  Company Number: B0586203A

PATIENT
  Sex: Female

DRUGS (4)
  1. LANOXIN [Suspect]
     Indication: ARRHYTHMIA
     Dosage: .125MG PER DAY
     Route: 048
     Dates: start: 20090328, end: 20090329
  2. ISOPTIN [Suspect]
     Indication: ARRHYTHMIA
     Dosage: 40MG PER DAY
     Route: 048
     Dates: start: 20090328, end: 20090329
  3. CARDIRENE [Suspect]
     Indication: THROMBOSIS PROPHYLAXIS
     Dosage: 160MG PER DAY
     Route: 048
     Dates: start: 20090328, end: 20090329
  4. POTASSIUM CHLORIDE [Concomitant]
     Route: 048

REACTIONS (6)
  - DYSPHAGIA [None]
  - ERYTHEMA [None]
  - EYE DISCHARGE [None]
  - EYE HAEMORRHAGE [None]
  - EYE SWELLING [None]
  - OCULAR HYPERAEMIA [None]
